FAERS Safety Report 13491807 (Version 2)
Quarter: 2017Q2

REPORT INFORMATION
  Report Type: Spontaneous
  Country: US (occurrence: US)
  Receive Date: 20170427
  Receipt Date: 20170523
  Transmission Date: 20170830
  Serious: No
  Sender: FDA-Public Use
  Company Number: US-JNJFOC-20170408854

PATIENT
  Age: 57 Year
  Sex: Female
  Weight: 68.04 kg

DRUGS (1)
  1. INVEGA SUSTENNA [Suspect]
     Active Substance: PALIPERIDONE PALMITATE
     Indication: PRODUCT USED FOR UNKNOWN INDICATION
     Route: 030

REACTIONS (3)
  - Accidental exposure to product [Unknown]
  - Product leakage [Unknown]
  - Dry skin [Unknown]

NARRATIVE: CASE EVENT DATE: 20170406
